FAERS Safety Report 8136482-1 (Version None)
Quarter: 2012Q1

REPORT INFORMATION
  Report Type: 
  Country: None (occurrence: None)
  Receive Date: 20120103
  Receipt Date: 20110823
  Transmission Date: 20120608
  Serious: No
  Sender: FDA-Public Use
  Company Number: AE-2011-001085

PATIENT
  Age: 49 Year
  Sex: Male

DRUGS (8)
  1. INCIVEK [Suspect]
     Dosage: 2250 MG (750 MG,3 IN 1 D), ORAL
     Route: 048
     Dates: start: 20110802
  2. MILK THISTLE [Concomitant]
  3. AMITRIPTYLINE HCL [Concomitant]
  4. OMEPRAZOLE [Concomitant]
  5. LEXAPRO [Concomitant]
  6. PEGASYS [Concomitant]
  7. LISINOPRIL [Concomitant]
  8. RIBAPAK (RIBAVIRIN) [Concomitant]

REACTIONS (3)
  - BALANCE DISORDER [None]
  - PYREXIA [None]
  - DIARRHOEA [None]
